FAERS Safety Report 15420992 (Version 1)
Quarter: 2018Q3

REPORT INFORMATION
  Report Type: Spontaneous
  Country: US (occurrence: US)
  Receive Date: 20180924
  Receipt Date: 20180924
  Transmission Date: 20181010
  Serious: No
  Sender: FDA-Public Use
  Company Number: US-ALLERGAN-1772879US

PATIENT
  Sex: Male
  Weight: 67 kg

DRUGS (2)
  1. LINZESS [Suspect]
     Active Substance: LINACLOTIDE
     Indication: IRRITABLE BOWEL SYNDROME
  2. LINZESS [Suspect]
     Active Substance: LINACLOTIDE
     Indication: DIVERTICULUM
     Dosage: 72 ?G, UNK
     Route: 048
     Dates: start: 20171209, end: 20171211

REACTIONS (2)
  - Drug ineffective [Unknown]
  - Off label use [Unknown]
